FAERS Safety Report 8815151 (Version 1)
Quarter: 2012Q4

REPORT INFORMATION
  Report Type: 
  Country: US (occurrence: US)
  Receive Date: 20120928
  Receipt Date: 20120928
  Transmission Date: 20130627
  Serious: Yes (Hospitalization)
  Sender: FDA-Public Use
  Company Number: US-ELI_LILLY_AND_COMPANY-US201201002040

PATIENT
  Sex: Female

DRUGS (3)
  1. FORTEO [Suspect]
     Indication: OSTEOPOROSIS
     Dosage: 20 ug, qd
     Route: 065
     Dates: start: 20111211
  2. FORTEO [Suspect]
     Dosage: 20 ug, qd
     Route: 065
     Dates: start: 20120104
  3. FORTEO [Suspect]
     Dosage: 20 ug, qd

REACTIONS (5)
  - Chronic obstructive pulmonary disease [Recovering/Resolving]
  - Hypersomnia [Unknown]
  - Fatigue [Unknown]
  - Hair growth abnormal [Unknown]
  - Injection site pain [Unknown]
